FAERS Safety Report 7545718-7 (Version None)
Quarter: 2011Q2

REPORT INFORMATION
  Report Type: 
  Country: None (occurrence: None)
  Receive Date: 20110614
  Receipt Date: 20110607
  Transmission Date: 20111010
  Serious: Yes (Other)
  Sender: FDA-Public Use
  Company Number: US-AMGEN-USASP2011028736

PATIENT
  Age: 85 Year
  Sex: Male
  Weight: 100.23 kg

DRUGS (4)
  1. PROCRIT [Concomitant]
     Dosage: 30000 UNIT, QWK
     Route: 058
  2. PREDNISONE [Concomitant]
     Dosage: 15 MG, QD
     Route: 048
  3. NPLATE [Suspect]
     Indication: IDIOPATHIC THROMBOCYTOPENIC PURPURA
     Dosage: 10 A?G/KG, QWK
     Route: 058
     Dates: start: 20100617, end: 20110203
  4. CORTICOSTEROIDS [Concomitant]

REACTIONS (6)
  - MYOPATHY [None]
  - THERAPEUTIC RESPONSE DECREASED [None]
  - MYELODYSPLASTIC SYNDROME [None]
  - GAIT DISTURBANCE [None]
  - THROMBOCYTOPENIA [None]
  - CONTUSION [None]
